FAERS Safety Report 9186477 (Version 2)
Quarter: 2013Q2

REPORT INFORMATION
  Report Type: Spontaneous
  Country: GB (occurrence: GB)
  Receive Date: 20130325
  Receipt Date: 20130405
  Transmission Date: 20140414
  Serious: Yes (Hospitalization, Other)
  Sender: FDA-Public Use
  Company Number: GB-JNJFOC-20070600871

PATIENT
  Age: 29 Year
  Sex: Male
  Weight: 90 kg

DRUGS (4)
  1. IBUPROFEN [Suspect]
     Route: 048
  2. IBUPROFEN [Suspect]
     Indication: PAIN IN EXTREMITY
     Dosage: 200MG THEN 400 MG PER MD
     Route: 048
     Dates: end: 19950429
  3. CIPROFIBRATE [Interacting]
     Indication: HYPERCHOLESTEROLAEMIA
     Dosage: 100MG THEN 200MG/DAY MORE THEN 6 MONTHS
     Route: 048
  4. CIPROFIBRATE [Interacting]
     Indication: TYPE III HYPERLIPIDAEMIA
     Dosage: 100MG THEN 200MG/DAY MORE THEN 6 MONTHS
     Route: 048

REACTIONS (3)
  - Renal failure acute [Recovered/Resolved]
  - Drug interaction [Recovered/Resolved]
  - Rhabdomyolysis [Recovered/Resolved]
